FAERS Safety Report 5190762-0 (Version None)
Quarter: 2006Q4

REPORT INFORMATION
  Report Type: 
  Country: None (occurrence: None)
  Receive Date: 20061222
  Receipt Date: 20061215
  Transmission Date: 20070319
  Serious: Yes (Hospitalization)
  Sender: FDA-Public Use
  Company Number: CH-ROCHE-475520

PATIENT
  Age: 67 Year
  Sex: Female

DRUGS (15)
  1. BONIVA [Suspect]
     Indication: OSTEOPOROSIS
     Route: 042
     Dates: end: 20061123
  2. DIOVAN [Concomitant]
     Route: 048
  3. TORSEMIDE [Concomitant]
     Route: 048
  4. LESCOL [Concomitant]
     Route: 048
  5. PANTOZOL [Concomitant]
     Route: 048
  6. MEPHANOL [Concomitant]
     Route: 048
  7. ELTROXIN [Concomitant]
     Route: 048
  8. CITALOPRAM HYDROBROMIDE [Concomitant]
     Route: 048
  9. ROHYPNOL [Concomitant]
     Route: 048
  10. VENTOLIN [Concomitant]
     Route: 055
  11. ATROVENT [Concomitant]
     Route: 055
  12. PULMICORT [Concomitant]
     Route: 055
  13. MORPHINE [Concomitant]
     Route: 048
  14. LEXOTANIL [Concomitant]
     Route: 048
  15. CETIRIZINE HCL [Concomitant]
     Route: 048

REACTIONS (1)
  - RENAL FAILURE ACUTE [None]
